FAERS Safety Report 16299257 (Version 2)
Quarter: 2019Q2

REPORT INFORMATION
  Report Type: Spontaneous
  Country: US (occurrence: US)
  Receive Date: 20190510
  Receipt Date: 20190524
  Transmission Date: 20190711
  Serious: Yes (Hospitalization, Disabling, Other)
  Sender: FDA-Public Use
  Company Number: US-HORMOSAN PHARMA GMBH-2019-02768

PATIENT
  Age: 53 Year
  Sex: Male
  Weight: 60.77 kg

DRUGS (1)
  1. QUETIAPINE TABLETS USP, 300 MG [Suspect]
     Active Substance: QUETIAPINE
     Indication: BIPOLAR DISORDER
     Dosage: UNK MILLIGRAM, QD
     Route: 048
     Dates: start: 2006

REACTIONS (3)
  - Cardiac neoplasm unspecified [Recovered/Resolved]
  - Benign hepatic neoplasm [Not Recovered/Not Resolved]
  - Skin discolouration [Recovering/Resolving]

NARRATIVE: CASE EVENT DATE: 20190305
